FAERS Safety Report 23657072 (Version 1)
Quarter: 2024Q1

REPORT INFORMATION
  Report Type: Spontaneous
  Country: FR (occurrence: FR)
  Receive Date: 20240321
  Receipt Date: 20240321
  Transmission Date: 20240410
  Serious: Yes (Hospitalization, Other)
  Sender: FDA-Public Use
  Company Number: None

PATIENT
  Age: 91 Year
  Sex: Female
  Weight: 60 kg

DRUGS (2)
  1. ENOXAPARIN SODIUM [Suspect]
     Active Substance: ENOXAPARIN SODIUM
     Indication: Deep vein thrombosis
     Dosage: 4000IU, BID
     Route: 058
     Dates: start: 20240109, end: 20240116
  2. FONDAPARINUX SODIUM [Suspect]
     Active Substance: FONDAPARINUX SODIUM
     Indication: Deep vein thrombosis
     Dosage: 5MG, QD
     Route: 058
     Dates: start: 20240120, end: 20240201

REACTIONS (2)
  - Bullous haemorrhagic dermatosis [Recovering/Resolving]
  - Bullous haemorrhagic dermatosis [Recovering/Resolving]

NARRATIVE: CASE EVENT DATE: 20240115
